FAERS Safety Report 9785491 (Version 1)
Quarter: 2013Q4

REPORT INFORMATION
  Report Type: Spontaneous
  Country: FR (occurrence: FR)
  Receive Date: 20131227
  Receipt Date: 20131227
  Transmission Date: 20140711
  Serious: Yes (Other)
  Sender: FDA-Public Use
  Company Number: FR-ASTRAZENECA-2013SE93207

PATIENT
  Age: 24055 Day
  Sex: Female
  Weight: 70 kg

DRUGS (2)
  1. INEXIUM [Suspect]
     Indication: GASTROOESOPHAGEAL REFLUX DISEASE
     Route: 048
     Dates: start: 20130920, end: 20131020
  2. INEXIUM [Suspect]
     Indication: GASTROOESOPHAGEAL REFLUX DISEASE
     Route: 048
     Dates: start: 20131020, end: 20131102

REACTIONS (4)
  - Burning sensation mucosal [Recovering/Resolving]
  - Temperature intolerance [Recovering/Resolving]
  - Paraesthesia oral [Recovering/Resolving]
  - Dry mouth [Recovering/Resolving]
